FAERS Safety Report 5957062-X (Version None)
Quarter: 2008Q4

REPORT INFORMATION
  Report Type: 
  Country: None (occurrence: None)
  Receive Date: 20081118
  Receipt Date: 20081110
  Transmission Date: 20090506
  Serious: Yes (Other)
  Sender: FDA-Public Use
  Company Number: PHHY2008CA27961

PATIENT

DRUGS (1)
  1. DIOVAN [Suspect]
     Indication: HYPERTENSION
     Dosage: 160 MG

REACTIONS (2)
  - AORTIC VALVE REPLACEMENT [None]
  - HYPERTENSION [None]
